FAERS Safety Report 15241827 (Version 1)
Quarter: 2018Q3

REPORT INFORMATION
  Report Type: Report from Study
  Country: BE (occurrence: BE)
  Receive Date: 20180805
  Receipt Date: 20180805
  Transmission Date: 20181019
  Serious: Yes (Other)
  Sender: FDA-Public Use
  Company Number: BE-TEVA-2018-BE-935074

PATIENT
  Age: 72 Year
  Sex: Female
  Weight: 56 kg

DRUGS (10)
  1. PACLITAXEL. [Suspect]
     Active Substance: PACLITAXEL
     Indication: OVARIAN CANCER
     Route: 042
     Dates: start: 20151127
  2. POTASSIUM CHLORIDE. [Concomitant]
     Active Substance: POTASSIUM CHLORIDE
     Route: 065
     Dates: start: 20160224, end: 20160224
  3. CARBOPLATIN. [Suspect]
     Active Substance: CARBOPLATIN
     Indication: OVARIAN CANCER
     Dosage: 2.7 AUC
     Route: 042
     Dates: start: 20151127
  4. PACKED CELLS [Concomitant]
     Active Substance: CELLS, NOS
     Indication: ANAEMIA
     Route: 065
     Dates: start: 20160225, end: 20160225
  5. CISPLATIN. [Concomitant]
     Active Substance: CISPLATIN
     Indication: OVARIAN CANCER
  6. POTASSIUM CHLORIDE. [Concomitant]
     Active Substance: POTASSIUM CHLORIDE
     Indication: HYPOKALAEMIA
     Route: 065
     Dates: start: 20160226, end: 20160226
  7. AVASTIN [Suspect]
     Active Substance: BEVACIZUMAB
     Indication: OVARIAN CANCER
     Route: 042
     Dates: start: 20151127
  8. PARACETAMOL [Concomitant]
     Active Substance: ACETAMINOPHEN
     Indication: PAIN
     Route: 065
     Dates: start: 20160223, end: 20160225
  9. RANITIDINE. [Concomitant]
     Active Substance: RANITIDINE
     Route: 065
     Dates: start: 20160225, end: 20160225
  10. PANTOMED (PANTOPRAZOLE) [Concomitant]
     Active Substance: PANTOPRAZOLE
     Route: 065
     Dates: start: 20160224, end: 20160224

REACTIONS (12)
  - Peripheral sensory neuropathy [Not Recovered/Not Resolved]
  - Nasopharyngitis [Recovered/Resolved]
  - Proteinuria [Not Recovered/Not Resolved]
  - Dermatitis [Recovered/Resolved]
  - Cough [Recovered/Resolved]
  - Diastasis recti abdominis [Not Recovered/Not Resolved]
  - Periodontitis [Recovered/Resolved]
  - Gingivitis [Recovered/Resolved]
  - Dizziness [Not Recovered/Not Resolved]
  - Hypertension [Not Recovered/Not Resolved]
  - Deafness [Not Recovered/Not Resolved]
  - Tooth abscess [Recovered/Resolved]

NARRATIVE: CASE EVENT DATE: 20160107
